FAERS Safety Report 15874148 (Version 5)
Quarter: 2019Q3

REPORT INFORMATION
  Report Type: Other
  Country: US (occurrence: US)
  Receive Date: 20190126
  Receipt Date: 20190812
  Transmission Date: 20191004
  Serious: Yes (Disabling)
  Sender: FDA-Public Use
  Company Number: US-ACORDA-ACO_151490_2018

PATIENT
  Sex: Male

DRUGS (5)
  1. AMPYRA [Suspect]
     Active Substance: DALFAMPRIDINE
     Indication: MULTIPLE SCLEROSIS
     Dosage: 10 MG, Q 12 HRS
     Route: 048
     Dates: start: 20180530
  2. REBIF [Suspect]
     Active Substance: INTERFERON BETA-1A
     Dosage: 22 MCG, 3X/WK
     Route: 058
  3. REBIF [Suspect]
     Active Substance: INTERFERON BETA-1A
     Indication: PRODUCT USED FOR UNKNOWN INDICATION
     Dosage: 22 MCG, 3X/WK
     Route: 058
     Dates: start: 201804
  4. REBIF [Suspect]
     Active Substance: INTERFERON BETA-1A
     Dosage: 44 MICROGRAM, 3X/WK
     Route: 058
  5. GLATOPA [Suspect]
     Active Substance: GLATIRAMER ACETATE
     Indication: PRODUCT USED FOR UNKNOWN INDICATION
     Dosage: 40 MILLIGRAM, 3X/WK
     Route: 058

REACTIONS (9)
  - Ill-defined disorder [Recovering/Resolving]
  - Bedridden [Recovering/Resolving]
  - Injection site pain [Recovering/Resolving]
  - Influenza like illness [Recovering/Resolving]
  - Injection site urticaria [Recovering/Resolving]
  - Myalgia [Recovering/Resolving]
  - Feeling abnormal [Recovering/Resolving]
  - Urine analysis abnormal [Recovering/Resolving]
  - Malaise [Recovering/Resolving]
